FAERS Safety Report 6459131-7 (Version None)
Quarter: 2009Q4

REPORT INFORMATION
  Report Type: 
  Country: None (occurrence: None)
  Receive Date: 20091127
  Receipt Date: 20091125
  Transmission Date: 20100525
  Serious: Yes (Hospitalization, Other)
  Sender: FDA-Public Use
  Company Number: US-BRISTOL-MYERS SQUIBB COMPANY-14853683

PATIENT
  Age: 63 Year
  Sex: Male
  Weight: 129 kg

DRUGS (18)
  1. AVAPRO [Suspect]
     Indication: HYPOTENSION
     Dosage: 16NOV09-20NOV09 TAKING FOR ABOUT 4 DAYS
     Route: 048
     Dates: start: 20091116, end: 20091120
  2. COUMADIN [Suspect]
     Indication: ATRIAL FIBRILLATION
     Dosage: THERAPY DATES: JUN08-OCT09. OCT09-CONT.
     Route: 048
     Dates: start: 20080601
  3. ASPIRIN [Suspect]
     Indication: FLUSHING
     Dosage: TAKEN 81 MG FROM OCT09-CONT.
     Route: 048
  4. CINRYZE [Suspect]
     Indication: PROPHYLAXIS
     Route: 042
     Dates: start: 20090629
  5. NIASPAN [Concomitant]
     Indication: BLOOD CHOLESTEROL INCREASED
     Route: 048
  6. SYNTHROID [Concomitant]
     Indication: HYPOTHYROIDISM
     Route: 048
  7. LASIX [Concomitant]
     Indication: FLUID RETENTION
     Route: 048
  8. POTASSIUM [Concomitant]
     Indication: HYPOKALAEMIA
     Route: 048
  9. IRON [Concomitant]
     Indication: ANAEMIA
  10. LOPID [Concomitant]
  11. LEVITRA [Concomitant]
  12. CARDIZEM [Concomitant]
  13. MULTI-VITAMIN [Concomitant]
  14. DIGOXIN [Concomitant]
  15. EPIPEN [Concomitant]
  16. VITAMIN B-12 [Concomitant]
  17. SONATA [Concomitant]
     Dosage: FREQUENCY: QHS.
  18. PRISTIQ [Concomitant]

REACTIONS (16)
  - ANAEMIA [None]
  - ASTHENIA [None]
  - CHEST DISCOMFORT [None]
  - CONDUCTION DISORDER [None]
  - DIVERTICULUM [None]
  - DYSPNOEA [None]
  - FAECES DISCOLOURED [None]
  - GASTROOESOPHAGEAL REFLUX DISEASE [None]
  - HEADACHE [None]
  - INFUSION SITE HAEMATOMA [None]
  - INSOMNIA [None]
  - MYOCARDIAL INFARCTION [None]
  - NAUSEA [None]
  - NODAL ARRHYTHMIA [None]
  - SYNCOPE [None]
  - VENTRICULAR EXTRASYSTOLES [None]
